FAERS Safety Report 9146318 (Version 2)
Quarter: 2013Q1

REPORT INFORMATION
  Report Type: Spontaneous
  Country: GB (occurrence: GB)
  Receive Date: 20130307
  Receipt Date: 20130311
  Transmission Date: 20140127
  Serious: Yes (Other)
  Sender: FDA-Public Use
  Company Number: PHHY2013GB021175

PATIENT
  Sex: Female

DRUGS (2)
  1. DIAZEPAM [Suspect]
     Route: 065
  2. DIAZEPAM [Suspect]

REACTIONS (3)
  - Victim of child abuse [Unknown]
  - Intentional drug misuse [Unknown]
  - Overdose [Unknown]
